FAERS Safety Report 4611511-8 (Version None)
Quarter: 2005Q1

REPORT INFORMATION
  Report Type: 
  Country: None (occurrence: None)
  Receive Date: 20050316
  Receipt Date: 20050316
  Transmission Date: 20050727
  Serious: Yes (Other)
  Sender: FDA-Public Use
  Company Number: None

PATIENT
  Age: 54 Year
  Sex: Female

DRUGS (11)
  1. FAMOTIDINE [Suspect]
     Indication: GASTROOESOPHAGEAL REFLUX DISEASE
     Dosage: 1 BY MOUTH DAILY
     Route: 048
     Dates: start: 20050225, end: 20050311
  2. FAMOTIDINE [Suspect]
     Indication: HIATUS HERNIA
     Dosage: 1 BY MOUTH DAILY
     Route: 048
     Dates: start: 20050225, end: 20050311
  3. FLONASE [Concomitant]
  4. GABAPENTIN [Concomitant]
  5. TRIAMTERENE AND HYDROCHLOROTHIAZIDE [Concomitant]
  6. CAPOTEN [Concomitant]
  7. ACTOS [Concomitant]
  8. GLYBURIDE [Concomitant]
  9. TRICOR [Concomitant]
  10. ZYRTEC [Concomitant]
  11. LIPITOR [Concomitant]

REACTIONS (3)
  - DRUG INEFFECTIVE [None]
  - PHARMACEUTICAL PRODUCT COMPLAINT [None]
  - UNEVALUABLE EVENT [None]
